FAERS Safety Report 20367475 (Version 1)
Quarter: 2022Q1

REPORT INFORMATION
  Report Type: Spontaneous
  Country: DE (occurrence: DE)
  Receive Date: 20220124
  Receipt Date: 20220124
  Transmission Date: 20220423
  Serious: Yes (Hospitalization, Other)
  Sender: FDA-Public Use
  Company Number: DE-BRISTOL-MYERS SQUIBB COMPANY-BMS-2021-140564

PATIENT
  Age: 71 Year
  Sex: Male

DRUGS (8)
  1. IMATINIB [Suspect]
     Active Substance: IMATINIB
     Indication: Malignant melanoma
     Dosage: 400 MILLIGRAM
     Route: 065
     Dates: start: 20200720, end: 202102
  2. IPILIMUMAB [Suspect]
     Active Substance: IPILIMUMAB
     Indication: Malignant melanoma
     Dosage: 255 MILLIGRAM
     Route: 042
     Dates: start: 20201221, end: 20201221
  3. IPILIMUMAB [Suspect]
     Active Substance: IPILIMUMAB
     Dosage: 255 MILLIGRAM
     Route: 042
     Dates: start: 20210115, end: 20210115
  4. IPILIMUMAB [Suspect]
     Active Substance: IPILIMUMAB
     Dosage: 255 MILLIGRAM
     Route: 042
     Dates: start: 20210205, end: 20210205
  5. NIVOLUMAB [Suspect]
     Active Substance: NIVOLUMAB
     Indication: Malignant melanoma
     Dosage: 480 MILLIGRAM, Q4WK
     Route: 042
     Dates: start: 20200214, end: 20200417
  6. NIVOLUMAB [Suspect]
     Active Substance: NIVOLUMAB
     Dosage: 85 MILLIGRAM
     Route: 042
     Dates: start: 20201221, end: 20201221
  7. NIVOLUMAB [Suspect]
     Active Substance: NIVOLUMAB
     Dosage: 85 MILLIGRAM
     Route: 042
     Dates: start: 20210115, end: 20210115
  8. NIVOLUMAB [Suspect]
     Active Substance: NIVOLUMAB
     Dosage: 85 MILLIGRAM
     Route: 042
     Dates: start: 20210205, end: 20210205

REACTIONS (1)
  - Immune-mediated hepatitis [Recovering/Resolving]

NARRATIVE: CASE EVENT DATE: 20210219
